FAERS Safety Report 5209090-X (Version None)
Quarter: 2007Q1

REPORT INFORMATION
  Report Type: 
  Country: None (occurrence: None)
  Receive Date: 20070116
  Receipt Date: 20070111
  Transmission Date: 20070707
  Serious: Yes (Death, Hospitalization)
  Sender: FDA-Public Use
  Company Number: -BAXTER-2005BH003030

PATIENT
  Age: 54 Year
  Sex: Male

DRUGS (3)
  1. DEXAMETHASONE [Suspect]
     Indication: LEUKAEMIA PLASMACYTIC
     Dosage: DOSE UNIT:UNKNOWN
     Route: 065
  2. CYCLOPHOSPHAMIDE [Suspect]
     Indication: LEUKAEMIA PLASMACYTIC
     Dosage: DOSE UNIT:UNKNOWN
     Route: 065
  3. CISPLATIN [Suspect]
     Indication: LEUKAEMIA PLASMACYTIC
     Dosage: DOSE UNIT:UNKNOWN
     Route: 065

REACTIONS (3)
  - CARDIAC ARREST [None]
  - METASTASES TO SKIN [None]
  - SEPSIS [None]
